FAERS Safety Report 5650540-2 (Version None)
Quarter: 2008Q1

REPORT INFORMATION
  Report Type: 
  Country: None (occurrence: None)
  Receive Date: 20080305
  Receipt Date: 20080227
  Transmission Date: 20080703
  Serious: Yes (Death, Hospitalization, Other)
  Sender: FDA-Public Use
  Company Number: US-BAYER-200716369NA

PATIENT
  Age: 61 Year
  Sex: Male

DRUGS (13)
  1. NEXAVAR [Suspect]
     Indication: LEIOMYOSARCOMA
     Dosage: TOTAL DAILY DOSE: 800 MG  UNIT DOSE: 200 MG
     Route: 048
     Dates: start: 20071001, end: 20071021
  2. NEXAVAR [Suspect]
     Dosage: TOTAL DAILY DOSE: 800 MG  UNIT DOSE: 200 MG
     Route: 048
     Dates: start: 20071009, end: 20071001
  3. NEXAVAR [Suspect]
     Dosage: TOTAL DAILY DOSE: 800 MG  UNIT DOSE: 200 MG
     Route: 048
     Dates: start: 20071001, end: 20071015
  4. LOPRESSOR [Concomitant]
     Route: 048
  5. CASPOFUNGIN [Concomitant]
     Indication: ABDOMINAL ABSCESS
     Dates: start: 20070801
  6. TYGACIL [Concomitant]
     Indication: ABDOMINAL ABSCESS
     Dates: start: 20070801
  7. LORTAB [Concomitant]
  8. NEXIUM [Concomitant]
     Indication: PROPHYLAXIS
  9. RED BLOOD CELLS [Concomitant]
     Indication: HAEMOGLOBIN DECREASED
     Route: 042
     Dates: start: 20070926, end: 20070927
  10. RED BLOOD CELLS [Concomitant]
     Route: 042
     Dates: start: 20071001
  11. RED BLOOD CELLS [Concomitant]
     Route: 042
     Dates: start: 20071021
  12. CARAFATE [Concomitant]
     Indication: ANAEMIA
  13. PROTONIX [Concomitant]
     Indication: ANAEMIA

REACTIONS (8)
  - ASTHENIA [None]
  - DEHYDRATION [None]
  - HAEMATEMESIS [None]
  - HAEMORRHAGE [None]
  - MELAENA [None]
  - NAUSEA [None]
  - SARCOMA [None]
  - VOMITING [None]
